FAERS Safety Report 21184925 (Version 2)
Quarter: 2024Q3

REPORT INFORMATION
  Report Type: Spontaneous
  Country: IT (occurrence: IT)
  Receive Date: 20220808
  Receipt Date: 20240823
  Transmission Date: 20241017
  Serious: Yes (Other)
  Sender: AKCEA THERAPEUTICS
  Company Number: IT-AKCEA THERAPEUTICS, INC.-2022IS003861

PATIENT

DRUGS (1)
  1. TEGSEDI [Suspect]
     Active Substance: INOTERSEN SODIUM
     Indication: Hereditary neuropathic amyloidosis
     Dosage: UNK
     Route: 065
     Dates: start: 202011

REACTIONS (1)
  - Drug-induced liver injury [Recovered/Resolved]
